FAERS Safety Report 9777006 (Version 2)
Quarter: 2014Q1

REPORT INFORMATION
  Report Type: Report from Study
  Country: FR (occurrence: FR)
  Receive Date: 20131221
  Receipt Date: 20140129
  Transmission Date: 20141002
  Serious: Yes (Hospitalization, Other)
  Sender: FDA-Public Use
  Company Number: FR-ROCHE-1320600

PATIENT
  Sex: Female

DRUGS (3)
  1. RITUXIMAB [Suspect]
     Indication: RHEUMATOID ARTHRITIS
     Route: 042
     Dates: start: 20081007
  2. CORTANCYL [Concomitant]
  3. METHOTREXATE [Concomitant]

REACTIONS (9)
  - Blood immunoglobulin G decreased [Unknown]
  - Sinusitis [Unknown]
  - Embolism [Unknown]
  - Atrial fibrillation [Unknown]
  - Carbohydrate antigen 125 increased [Unknown]
  - Rhinorrhoea [Recovered/Resolved]
  - Bronchitis [Recovered/Resolved]
  - Aphthous stomatitis [Recovered/Resolved]
  - Carbohydrate antigen 15-3 increased [Unknown]
